FAERS Safety Report 8578436-7 (Version None)
Quarter: 2012Q3

REPORT INFORMATION
  Report Type: 
  Country: None (occurrence: None)
  Receive Date: 20120808
  Receipt Date: 20120730
  Transmission Date: 20120928
  Serious: Yes (Hospitalization, Other)
  Sender: FDA-Public Use
  Company Number: US-BAYER-2012-019863

PATIENT
  Age: 31 Year
  Sex: Female
  Weight: 78 kg

DRUGS (7)
  1. OGESTREL 0.5/50-21 [Concomitant]
     Dosage: 0.3-30MCG
     Route: 048
  2. VALTREX [Concomitant]
     Dosage: 500 MG, BID
     Route: 048
  3. YASMIN [Suspect]
     Indication: CONTRACEPTION
     Dates: start: 20030701, end: 20070607
  4. YASMIN [Suspect]
     Indication: DYSMENORRHOEA
  5. NEXIUM [Concomitant]
     Dosage: UNK
     Dates: start: 20050101
  6. TYLENOL W/ CODEINE NO. 3 [Concomitant]
     Indication: PAIN
     Dosage: ONE TAB Q4-6 HOURS AS NEEDED
     Route: 048
  7. MERIDIA [Concomitant]
     Dosage: 15 MG, 1 DAILY
     Route: 048

REACTIONS (4)
  - CHOLECYSTITIS CHRONIC [None]
  - MENTAL DISORDER [None]
  - PAIN [None]
  - CHOLECYSTECTOMY [None]
